FAERS Safety Report 8609069-1 (Version None)
Quarter: 2012Q3

REPORT INFORMATION
  Report Type: 
  Country: None (occurrence: None)
  Receive Date: 20120821
  Receipt Date: 20120814
  Transmission Date: 20120928
  Serious: Yes (Death, Hospitalization, Other)
  Sender: FDA-Public Use
  Company Number: US-JNJFOC-20070203172

PATIENT
  Sex: Male

DRUGS (6)
  1. REMICADE [Suspect]
     Dosage: DATE ALSO REPORTED AS 5-MAY-2005
     Route: 042
     Dates: start: 20050401
  2. REMICADE [Suspect]
     Indication: CROHN'S DISEASE
     Dosage: SECOND DOSE
     Route: 042
     Dates: start: 20050321
  3. PREDNISONE TAB [Concomitant]
  4. MERCAPTOPURINE [Suspect]
     Indication: CROHN'S DISEASE
  5. REMICADE [Suspect]
     Route: 042
     Dates: start: 20000101
  6. MESALAMINE [Concomitant]

REACTIONS (3)
  - HEPATOSPLENIC T-CELL LYMPHOMA [None]
  - MULTI-ORGAN FAILURE [None]
  - STAPHYLOCOCCAL ABSCESS [None]
